FAERS Safety Report 10682017 (Version 1)
Quarter: 2014Q4

REPORT INFORMATION
  Report Type: Report from Study
  Country: DE (occurrence: DE)
  Receive Date: 20141230
  Receipt Date: 20141230
  Transmission Date: 20150529
  Serious: Yes (Hospitalization)
  Sender: FDA-Public Use
  Company Number: DE-ABBVIE-14K-062-1325422-00

PATIENT
  Age: 47 Year
  Sex: Male
  Weight: 63 kg

DRUGS (11)
  1. KREON [Concomitant]
     Active Substance: PANCRELIPASE
     Indication: PRODUCT USED FOR UNKNOWN INDICATION
     Dosage: 1-1-1
  2. SMOFKABIVEN [Concomitant]
     Active Substance: UNSPECIFIED INGREDIENT
     Indication: PRODUCT USED FOR UNKNOWN INDICATION
     Route: 042
  3. SOLU-DECORTIN-H [Concomitant]
     Active Substance: PREDNISOLONE HEMISUCCINATE
     Indication: PRODUCT USED FOR UNKNOWN INDICATION
     Dosage: 1-0-0
  4. HUMIRA [Suspect]
     Active Substance: ADALIMUMAB
     Indication: CROHN^S DISEASE
     Route: 058
     Dates: start: 20140819, end: 201411
  5. VITAMIN B12 [Concomitant]
     Active Substance: CYANOCOBALAMIN
     Indication: PRODUCT USED FOR UNKNOWN INDICATION
     Route: 042
  6. BUDESONIDE. [Concomitant]
     Active Substance: BUDESONIDE
     Indication: PRODUCT USED FOR UNKNOWN INDICATION
     Dosage: ORAL/LOCAL
     Route: 048
  7. AZATHIOPRINE /6-MP [Concomitant]
     Indication: PRODUCT USED FOR UNKNOWN INDICATION
  8. RINGER [Concomitant]
     Indication: PRODUCT USED FOR UNKNOWN INDICATION
     Route: 042
  9. OPIUM TINCTURE [Concomitant]
     Active Substance: OPIUM TINCTURE
     Indication: PRODUCT USED FOR UNKNOWN INDICATION
     Dosage: 1-1-1
  10. PANTOZOL [Concomitant]
     Active Substance: PANTOPRAZOLE SODIUM
     Indication: PRODUCT USED FOR UNKNOWN INDICATION
     Dosage: 1-0-1
  11. VITAMINE B1 [Concomitant]
     Indication: PRODUCT USED FOR UNKNOWN INDICATION

REACTIONS (15)
  - Ileal fistula [Not Recovered/Not Resolved]
  - Peritonitis bacterial [Unknown]
  - Short-bowel syndrome [Unknown]
  - Delirium [Unknown]
  - General physical health deterioration [Recovering/Resolving]
  - Sepsis [Recovering/Resolving]
  - Septic shock [Recovering/Resolving]
  - Abdominal lymphadenopathy [Unknown]
  - Coagulopathy [Unknown]
  - Pseudomonas infection [Unknown]
  - Ileus [Unknown]
  - Abdominal abscess [Unknown]
  - Crohn^s disease [Unknown]
  - Acute abdomen [Unknown]
  - B-cell lymphoma [Unknown]

NARRATIVE: CASE EVENT DATE: 201411
